FAERS Safety Report 11667598 (Version 2)
Quarter: 2015Q4

REPORT INFORMATION
  Report Type: Report from Study
  Country: JP (occurrence: JP)
  Receive Date: 20151027
  Receipt Date: 20151029
  Transmission Date: 20160304
  Serious: Yes (Hospitalization, Other)
  Sender: FDA-Public Use
  Company Number: JP-VIFOR (INTERNATIONAL) INC.-VIT-2015-02812

PATIENT
  Age: 73 Year
  Sex: Female

DRUGS (19)
  1. WARFARIN SODIUM. [Concomitant]
     Active Substance: WARFARIN SODIUM
  2. MIRCERA [Suspect]
     Active Substance: METHOXY POLYETHYLENE GLYCOL-EPOETIN BETA
     Route: 042
     Dates: start: 20130711
  3. PRAZAXA [Concomitant]
     Active Substance: DABIGATRAN ETEXILATE MESYLATE
     Route: 048
     Dates: start: 20130604, end: 20130619
  4. URSO [Concomitant]
     Active Substance: URSODIOL
     Route: 048
  5. ALOSENN [Concomitant]
     Active Substance: SENNA LEAF
     Route: 048
  6. CONIEL [Concomitant]
     Active Substance: BENIDIPINE HYDROCHLORIDE
     Route: 048
     Dates: end: 20130619
  7. MIRCERA [Suspect]
     Active Substance: METHOXY POLYETHYLENE GLYCOL-EPOETIN BETA
     Indication: NEPHROGENIC ANAEMIA
     Route: 042
     Dates: start: 20121220
  8. MAINTATE [Concomitant]
     Active Substance: BISOPROLOL FUMARATE
     Dates: start: 20150109
  9. LASIX [Concomitant]
     Active Substance: FUROSEMIDE
     Route: 048
     Dates: start: 20130620
  10. PRAZAXA [Concomitant]
     Active Substance: DABIGATRAN ETEXILATE MESYLATE
     Route: 048
     Dates: end: 20130530
  11. TAKEPRON [Concomitant]
     Active Substance: LANSOPRAZOLE
     Indication: PROPHYLAXIS
     Route: 048
  12. BLOPRESS [Concomitant]
     Active Substance: CANDESARTAN CILEXETIL
     Route: 048
  13. ALOSITOL [Concomitant]
     Active Substance: ALLOPURINOL
     Route: 048
  14. LASIX [Concomitant]
     Active Substance: FUROSEMIDE
     Route: 048
     Dates: start: 20130619
  15. HEPARIN SODIUM. [Concomitant]
     Active Substance: HEPARIN SODIUM
     Route: 042
     Dates: start: 20130530, end: 20130603
  16. SENNA [Concomitant]
     Active Substance: SENNA LEAF\SENNOSIDES\SENNOSIDES A AND B
  17. WARFARIN [Suspect]
     Active Substance: WARFARIN
     Indication: PRODUCT USED FOR UNKNOWN INDICATION
     Route: 048
     Dates: start: 20130620, end: 20150109
  18. SELARA [Concomitant]
     Active Substance: EPLERENONE
     Route: 048
  19. MUCOSTA [Concomitant]
     Active Substance: REBAMIPIDE
     Route: 048

REACTIONS (8)
  - Spinal compression fracture [Not Recovered/Not Resolved]
  - Anaemia [Recovered/Resolved]
  - Cardiac failure [Unknown]
  - Back pain [Not Recovered/Not Resolved]
  - Peripheral swelling [Unknown]
  - Blood creatinine increased [Unknown]
  - Hyperkalaemia [Recovered/Resolved]
  - Muscle haemorrhage [Recovered/Resolved]

NARRATIVE: CASE EVENT DATE: 20130314
